FAERS Safety Report 7062609 (Version 25)
Quarter: 2013Q3

REPORT INFORMATION
  Report Type: Spontaneous
  Country: US (occurrence: US)
  Receive Date: 20090724
  Receipt Date: 20130925
  Transmission Date: 20140515
  Serious: Yes (Death, Hospitalization, Other)
  Sender: FDA-Public Use
  Company Number: PHEH2009US07545

PATIENT
  Age: 70 Year
  Sex: Male

DRUGS (38)
  1. ZOMETA [Suspect]
     Indication: PROSTATE CANCER METASTATIC
     Dosage: 1 MG, MONTHLY
     Route: 042
     Dates: start: 20020325, end: 200302
  2. ZOMETA [Suspect]
     Indication: OSTEOPOROSIS PROPHYLAXIS
  3. AREDIA [Suspect]
     Indication: PROSTATE CANCER METASTATIC
     Route: 042
     Dates: start: 20010215, end: 20020325
  4. AREDIA [Suspect]
     Indication: OSTEOPOROSIS PROPHYLAXIS
     Dates: start: 200302, end: 200411
  5. VICODIN [Concomitant]
  6. PAXIL [Concomitant]
  7. AMIODARONE [Concomitant]
  8. COUMADIN ^BOOTS^ [Concomitant]
  9. FUROSEMIDE [Concomitant]
  10. ATACAND [Concomitant]
  11. COREG [Concomitant]
  12. METFORMIN [Concomitant]
  13. LISINOPRIL [Concomitant]
  14. AVANDIA [Concomitant]
  15. ENALAPRIL [Concomitant]
  16. ADVIL [Concomitant]
  17. TEMAZEPAM [Concomitant]
  18. METHADONE [Concomitant]
  19. NORCO [Concomitant]
  20. CIPRO [Concomitant]
  21. CASODEX [Concomitant]
  22. LEVAQUIN [Concomitant]
  23. LUPRON [Concomitant]
  24. BELLAMINE [Concomitant]
  25. PACERONE [Concomitant]
     Dosage: 200 MG, DAILY
  26. CLEOCIN [Concomitant]
     Dosage: 600 MG, Q6H
     Route: 042
  27. CLEOCIN [Concomitant]
     Dosage: 300 MG, Q6H
  28. BISOPROLOL W/HYDROCHLOROTHIAZIDE [Concomitant]
  29. SINGULAIR [Concomitant]
  30. CLONIDINE [Concomitant]
     Dosage: 0.2 MG, BID
  31. HYTRIN [Concomitant]
     Dosage: 5 MG, QHS
  32. ZOFRAN [Concomitant]
  33. PROCHLORPERAZINE [Concomitant]
  34. DEXAMETHASONE [Concomitant]
  35. LORAZEPAM [Concomitant]
  36. DIPHENHYDRAMINE [Concomitant]
  37. METOCLOPRAMIDE [Concomitant]
  38. KYTRIL [Concomitant]

REACTIONS (124)
  - Death [Fatal]
  - Osteonecrosis of jaw [Unknown]
  - Osteomyelitis [Unknown]
  - Pain in jaw [Unknown]
  - Dental caries [Unknown]
  - Exposed bone in jaw [Unknown]
  - Injury [Unknown]
  - Disability [Unknown]
  - Pain [Unknown]
  - Anxiety [Unknown]
  - Anhedonia [Unknown]
  - Tenderness [Unknown]
  - Gingival swelling [Unknown]
  - Tooth abscess [Unknown]
  - Diabetes mellitus [Unknown]
  - Cataract [Unknown]
  - Haemorrhage [Unknown]
  - Cardiac failure congestive [Unknown]
  - Tachycardia [Unknown]
  - Atrial flutter [Unknown]
  - Atrial fibrillation [Unknown]
  - Cardiomyopathy [Unknown]
  - Hypertension [Unknown]
  - Compression fracture [Unknown]
  - Malignant melanoma [Unknown]
  - Metastases to bone [Unknown]
  - Spinal osteoarthritis [Unknown]
  - Back pain [Unknown]
  - Cardiomegaly [Unknown]
  - Renal cyst [Unknown]
  - Hepatic cyst [Unknown]
  - Chronic obstructive pulmonary disease [Unknown]
  - Pulmonary fibrosis [Unknown]
  - Dyspnoea [Unknown]
  - Atelectasis [Unknown]
  - Nephrolithiasis [Unknown]
  - Addison^s disease [Unknown]
  - Left ventricular dysfunction [Unknown]
  - Musculoskeletal chest pain [Unknown]
  - Laryngeal cyst [Unknown]
  - Vocal cord thickening [Unknown]
  - Dysphonia [Unknown]
  - Depression [Unknown]
  - Fall [Unknown]
  - Lip haemorrhage [Unknown]
  - Paraesthesia [Unknown]
  - Deafness [Unknown]
  - Rhinitis [Unknown]
  - Dizziness [Unknown]
  - Lung infiltration [Unknown]
  - Interstitial lung disease [Unknown]
  - Exostosis [Unknown]
  - Ligament rupture [Unknown]
  - Meniscus injury [Unknown]
  - Basal ganglia infarction [Unknown]
  - Cerebral atrophy [Unknown]
  - Hemiparesis [Unknown]
  - Sleep apnoea syndrome [Unknown]
  - Hypoxia [Unknown]
  - Hypopnoea [Unknown]
  - Faecal incontinence [Unknown]
  - Urinary incontinence [Unknown]
  - Weight decreased [Unknown]
  - Gait disturbance [Unknown]
  - Rotator cuff syndrome [Unknown]
  - Osteoarthritis [Unknown]
  - Macular oedema [Unknown]
  - Wrist fracture [Unknown]
  - Bone pain [Unknown]
  - Vascular calcification [Unknown]
  - Skin disorder [Unknown]
  - Tinnitus [Unknown]
  - Vision blurred [Unknown]
  - Obesity [Unknown]
  - Epistaxis [Unknown]
  - Vomiting [Unknown]
  - Nausea [Unknown]
  - Anaemia [Unknown]
  - Cough [Unknown]
  - Malaise [Unknown]
  - Dysphagia [Unknown]
  - Lethargy [Unknown]
  - Sinusitis [Unknown]
  - Respiratory arrest [Unknown]
  - Mouth ulceration [Unknown]
  - Eustachian tube dysfunction [Unknown]
  - Ear pain [Unknown]
  - Temporomandibular joint syndrome [Unknown]
  - Vocal cord cyst [Unknown]
  - Aortic dilatation [Unknown]
  - Hyperadrenalism [Unknown]
  - Hepatic lesion [Unknown]
  - Lipomatosis [Unknown]
  - Hepatic steatosis [Unknown]
  - Cerebrovascular accident [Unknown]
  - Bone lesion [Unknown]
  - Arthritis [Unknown]
  - Night sweats [Unknown]
  - Joint swelling [Unknown]
  - Bone fragmentation [Unknown]
  - Arthralgia [Unknown]
  - Oral infection [Unknown]
  - Hyperhidrosis [Unknown]
  - Insomnia [Unknown]
  - Aphasia [Unknown]
  - Monoplegia [Unknown]
  - Teeth brittle [Unknown]
  - Decreased appetite [Unknown]
  - Constipation [Unknown]
  - Fatigue [Unknown]
  - Asthenia [Not Recovered/Not Resolved]
  - Rash [Recovered/Resolved]
  - Muscle atrophy [Unknown]
  - Scratch [Unknown]
  - Ecchymosis [Unknown]
  - Renal failure chronic [Unknown]
  - Bronchiectasis [Unknown]
  - Intervertebral disc degeneration [Unknown]
  - Emphysema [Unknown]
  - Arteriosclerosis [Unknown]
  - Dermatitis [Unknown]
  - Osteitis [Unknown]
  - Tooth loss [Unknown]
  - Arrhythmia [Unknown]
